FAERS Safety Report 5428372-X (Version None)
Quarter: 2007Q3

REPORT INFORMATION
  Report Type: 
  Country: None (occurrence: None)
  Receive Date: 20070731
  Receipt Date: 20070407
  Transmission Date: 20080115
  Serious: No
  Sender: FDA-Public Use
  Company Number: US200704002040

PATIENT
  Age: 70 Year
  Sex: Female

DRUGS (3)
  1. BYETTA [Suspect]
     Indication: TYPE 2 DIABETES MELLITUS
     Dosage: 5 UG, 2/D, SUBCUTANEOUS ;
     Route: 058
     Dates: start: 20061101, end: 20070101
  2. EXENATIDE 5MCG PEN, DISPOSABLE DEVICE [Concomitant]
  3. BYETTA [Suspect]
     Indication: TYPE 2 DIABETES MELLITUS
     Dosage: 10 UG 2/D. SUBCUTANEOUS
     Route: 058
     Dates: start: 20070201

REACTIONS (3)
  - FEELING HOT [None]
  - NAUSEA [None]
  - VOMITING [None]
